FAERS Safety Report 4837340-8 (Version None)
Quarter: 2005Q4

REPORT INFORMATION
  Report Type: 
  Country: None (occurrence: None)
  Receive Date: 20051128
  Receipt Date: 20051116
  Transmission Date: 20060501
  Serious: Yes (Hospitalization)
  Sender: FDA-Public Use
  Company Number: SE-JNJFOC-20051103984

PATIENT
  Age: 71 Year
  Sex: Female

DRUGS (13)
  1. REMICADE [Suspect]
     Dosage: 4TH INFUSION.
     Route: 042
  2. REMICADE [Suspect]
     Indication: RHEUMATOID ARTHRITIS
     Route: 042
  3. STILNOCT [Concomitant]
  4. CALCICHEW-D3 [Concomitant]
  5. CALCICHEW-D3 [Concomitant]
  6. OMEPRAZOLE [Concomitant]
  7. FOSAMAX [Concomitant]
  8. KETOGAN [Concomitant]
  9. KETOGAN [Concomitant]
  10. ACETAMINOPHEN [Concomitant]
  11. PLAQUENIL [Concomitant]
  12. ANAFRANIL [Concomitant]
  13. PREDNISOLONE [Concomitant]

REACTIONS (5)
  - CHILLS [None]
  - DIZZINESS [None]
  - HAEMATEMESIS [None]
  - INFUSION RELATED REACTION [None]
  - NAUSEA [None]
